FAERS Safety Report 6091945-8 (Version None)
Quarter: 2009Q1

REPORT INFORMATION
  Report Type: 
  Country: None (occurrence: None)
  Receive Date: 20090217
  Receipt Date: 20090206
  Transmission Date: 20090719
  Serious: Yes (Other)
  Sender: FDA-Public Use
  Company Number: THYM-1000876

PATIENT
  Age: 55 Year
  Sex: Male
  Weight: 80.8 kg

DRUGS (14)
  1. THYMOGLOBULIN [Suspect]
     Indication: APLASTIC ANAEMIA
     Dosage: 303 MG, QDX5, INTRAVENOUS
     Route: 042
     Dates: start: 20081230, end: 20090104
  2. CYCLOSPORINE [Concomitant]
  3. ACYCLOVIR [Concomitant]
  4. VANCOMYCIN [Concomitant]
  5. CHLORHEXIDINE (CHLORHEXIDINE) [Concomitant]
  6. NYSTATIN [Concomitant]
  7. NEOMYCIN (NEOMYCIN SULFATE) [Concomitant]
  8. COLISTIN (COLISTIN) [Concomitant]
  9. METHYLPREDNISOLONE 16MG TAB [Concomitant]
  10. CHLORPHENIRAMINE MALEATE [Concomitant]
  11. AMBISOME [Concomitant]
  12. MEPERIDINE HCL [Concomitant]
  13. METOCLOPRAMIDE [Concomitant]
  14. TRANEXAMIC ACID (TRANEXAMIC ACID) [Concomitant]

REACTIONS (9)
  - ASPARTATE AMINOTRANSFERASE INCREASED [None]
  - BLOOD ALKALINE PHOSPHATASE INCREASED [None]
  - BLOOD BILIRUBIN INCREASED [None]
  - CHILLS [None]
  - FEBRILE NEUTROPENIA [None]
  - GAMMA-GLUTAMYLTRANSFERASE INCREASED [None]
  - LYMPHOCYTE COUNT DECREASED [None]
  - PLATELET COUNT DECREASED [None]
  - RED BLOOD CELL COUNT DECREASED [None]
